FAERS Safety Report 17931485 (Version 1)
Quarter: 2020Q2

REPORT INFORMATION
  Report Type: Spontaneous
  Country: US (occurrence: US)
  Receive Date: 20200623
  Receipt Date: 20200623
  Transmission Date: 20200714
  Serious: Yes (Other)
  Sender: FDA-Public Use
  Company Number: US-BAYER-2020-114034

PATIENT
  Age: 48 Year
  Sex: Female

DRUGS (2)
  1. GADAVIST [Suspect]
     Active Substance: GADOBUTROL
     Indication: MAGNETIC RESONANCE IMAGING
     Dosage: UNK UNK, ONCE
     Dates: start: 20200213, end: 20200213
  2. GADAVIST [Suspect]
     Active Substance: GADOBUTROL
     Indication: PELVIC PAIN

REACTIONS (6)
  - Skin burning sensation [Not Recovered/Not Resolved]
  - Muscle contractions involuntary [Not Recovered/Not Resolved]
  - Insomnia [Not Recovered/Not Resolved]
  - Headache [Not Recovered/Not Resolved]
  - Paraesthesia [Not Recovered/Not Resolved]
  - Nontherapeutic agent urine positive [None]

NARRATIVE: CASE EVENT DATE: 202003
